FAERS Safety Report 11103110 (Version 1)
Quarter: 2015Q2

REPORT INFORMATION
  Report Type: Spontaneous
  Country: GB (occurrence: GB)
  Receive Date: 20150511
  Receipt Date: 20150511
  Transmission Date: 20150821
  Serious: Yes (Disabling)
  Sender: FDA-Public Use
  Company Number: GB-ELI_LILLY_AND_COMPANY-GB201504009420

PATIENT
  Age: 59 Year
  Sex: Female
  Weight: 65.31 kg

DRUGS (1)
  1. DULOXETINE HYDROCHLORIDE. [Suspect]
     Active Substance: DULOXETINE HYDROCHLORIDE
     Indication: PRODUCT USED FOR UNKNOWN INDICATION
     Dosage: UNK UNK, UNKNOWN
     Route: 065
     Dates: start: 20150301, end: 20150410

REACTIONS (13)
  - Myalgia [Recovered/Resolved]
  - Hyperhidrosis [Recovered/Resolved]
  - Drug withdrawal syndrome [Recovered/Resolved]
  - Headache [Recovered/Resolved]
  - Nightmare [Recovered/Resolved]
  - Abnormal weight gain [Recovered/Resolved]
  - Dizziness [Recovered/Resolved]
  - Arthralgia [Recovered/Resolved]
  - Chills [Recovered/Resolved]
  - Increased appetite [Recovered/Resolved]
  - Mood swings [Recovered/Resolved]
  - Vision blurred [Recovered/Resolved]
  - Abnormal dreams [Recovered/Resolved]
